FAERS Safety Report 9103756 (Version 2)
Quarter: 2013Q1

REPORT INFORMATION
  Report Type: Spontaneous
  Country: US (occurrence: US)
  Receive Date: 20130219
  Receipt Date: 20130315
  Transmission Date: 20140127
  Serious: No
  Sender: FDA-Public Use
  Company Number: US-PFIZER INC-2013061810

PATIENT
  Age: 35 Year
  Sex: Female
  Weight: 59 kg

DRUGS (2)
  1. LYRICA [Suspect]
     Indication: PAIN
     Dosage: 50 MG, 2X/DAY
     Route: 048
     Dates: start: 20130128, end: 20130214
  2. LYRICA [Suspect]
     Indication: NERVE INJURY

REACTIONS (5)
  - Drug ineffective [Unknown]
  - Fatigue [Not Recovered/Not Resolved]
  - Gastroenteritis viral [Unknown]
  - Dizziness [Recovering/Resolving]
  - Nausea [Recovering/Resolving]
